FAERS Safety Report 10607347 (Version 2)
Quarter: 2015Q1

REPORT INFORMATION
  Report Type: Spontaneous
  Country: US (occurrence: US)
  Receive Date: 20141125
  Receipt Date: 20150114
  Transmission Date: 20150720
  Serious: No
  Sender: FDA-Public Use
  Company Number: US-SHIRE-US201407794

PATIENT
  Age: 9 Year
  Sex: Female

DRUGS (3)
  1. VYVANSE [Suspect]
     Active Substance: LISDEXAMFETAMINE DIMESYLATE
     Indication: ATTENTION DEFICIT/HYPERACTIVITY DISORDER
     Dosage: 20 MG, 1X/DAY:QD
     Route: 048
     Dates: start: 20141103, end: 20141106
  2. ABILIFY [Concomitant]
     Active Substance: ARIPIPRAZOLE
     Indication: DISTURBANCE IN SOCIAL BEHAVIOUR
     Dosage: 2 MG(HALF TABLET), 2X/DAY:BID
     Route: 065
     Dates: start: 20130222
  3. TRAZODONE [Concomitant]
     Active Substance: TRAZODONE HYDROCHLORIDE
     Indication: DISTURBANCE IN SOCIAL BEHAVIOUR
     Dosage: 50 MG(ONE AND HALF TAB), 1X/DAY:QD(AT HS)
     Route: 065
     Dates: start: 20140618

REACTIONS (3)
  - Initial insomnia [Recovered/Resolved]
  - Middle insomnia [Recovered/Resolved]
  - Dyspnoea [Recovered/Resolved]

NARRATIVE: CASE EVENT DATE: 20141104
